FAERS Safety Report 8295111-7 (Version None)
Quarter: 2012Q2

REPORT INFORMATION
  Report Type: 
  Country: None (occurrence: None)
  Receive Date: 20120418
  Receipt Date: 20120404
  Transmission Date: 20120825
  Serious: Yes (Hospitalization)
  Sender: FDA-Public Use
  Company Number: JP-ROCHE-1050897

PATIENT
  Sex: Male
  Weight: 62.9 kg

DRUGS (9)
  1. PEGASYS [Suspect]
     Indication: HEPATITIS C
     Route: 058
     Dates: start: 20111102, end: 20111227
  2. COPEGUS [Suspect]
     Route: 048
     Dates: start: 20111213, end: 20111227
  3. MAGNESIUM SULFATE [Concomitant]
     Indication: CONSTIPATION
     Route: 048
     Dates: start: 20110609
  4. MUCOSTA [Concomitant]
     Indication: PYREXIA
     Route: 048
     Dates: start: 20111102
  5. APIDRA [Concomitant]
     Indication: TYPE 2 DIABETES MELLITUS
     Route: 058
     Dates: start: 20110408
  6. LIVACT [Concomitant]
     Indication: HEPATITIS C
     Route: 048
     Dates: start: 20110705, end: 20111115
  7. LOXONIN [Concomitant]
     Indication: PYREXIA
     Route: 048
  8. COPEGUS [Suspect]
     Indication: HEPATITIS C
     Route: 048
     Dates: start: 20111102, end: 20111213
  9. LOSARTAN POTASSIUM [Concomitant]
     Indication: HYPERTENSION
     Route: 048
     Dates: start: 20110831, end: 20111226

REACTIONS (4)
  - ANAEMIA [None]
  - CARDIAC FAILURE [None]
  - RENAL FAILURE ACUTE [None]
  - HEPATIC CONGESTION [None]
